FAERS Safety Report 4391796-6 (Version None)
Quarter: 2004Q3

REPORT INFORMATION
  Report Type: 
  Country: None (occurrence: None)
  Receive Date: 20040701
  Receipt Date: 20040623
  Transmission Date: 20050211
  Serious: Yes (Hospitalization)
  Sender: FDA-Public Use
  Company Number: 2004-02825

PATIENT
  Age: 73 Year
  Sex: Female

DRUGS (5)
  1. OXYTROL [Suspect]
  2. TIKOSYN [Concomitant]
  3. ENALAPRIL MALEATE [Concomitant]
  4. LIPITOR [Concomitant]
  5. PLAVIX [Concomitant]

REACTIONS (2)
  - CONDITION AGGRAVATED [None]
  - HEART RATE INCREASED [None]
